FAERS Safety Report 8859593 (Version 1)
Quarter: 2012Q4

REPORT INFORMATION
  Report Type: Spontaneous
  Country: US (occurrence: None)
  Receive Date: 20121022
  Receipt Date: 20121022
  Transmission Date: 20130627
  Serious: Yes (Hospitalization, Other)
  Sender: FDA-Public Use
  Company Number: HA12-310-AE

PATIENT
  Sex: Female

DRUGS (1)
  1. SMZ / TMP [Suspect]
     Indication: ACNE
     Dosage: Oral    
Mid-late September 2011
     Route: 048
     Dates: start: 201109

REACTIONS (8)
  - Stevens-Johnson syndrome [None]
  - Toxic epidermal necrolysis [None]
  - Pyrexia [None]
  - Local swelling [None]
  - Viral infection [None]
  - Hyperhidrosis [None]
  - Dysphagia [None]
  - Tablet physical issue [None]
